FAERS Safety Report 5191442-8 (Version None)
Quarter: 2006Q4

REPORT INFORMATION
  Report Type: 
  Country: None (occurrence: None)
  Receive Date: 20061226
  Receipt Date: 20060928
  Transmission Date: 20070319
  Serious: Yes (Hospitalization)
  Sender: FDA-Public Use
  Company Number: FR-MERCK-0610USA04512

PATIENT
  Age: 52 Year
  Sex: Male

DRUGS (4)
  1. MODURETIC 5-50 [Suspect]
     Indication: HYPERTENSION
     Route: 048
     Dates: start: 20031028
  2. COAPROVEL [Suspect]
     Indication: HYPERTENSION
     Route: 065
     Dates: start: 20031028, end: 20060713
  3. HYPERIUM [Suspect]
     Indication: HYPERTENSION
     Route: 065
     Dates: start: 20031028
  4. ALLOPURINOL [Suspect]
     Indication: HYPERURICAEMIA
     Route: 048
     Dates: start: 20031028

REACTIONS (2)
  - BLOOD CREATINE PHOSPHOKINASE INCREASED [None]
  - MYALGIA [None]
